FAERS Safety Report 5133127-X (Version None)
Quarter: 2006Q4

REPORT INFORMATION
  Report Type: 
  Country: None (occurrence: None)
  Receive Date: 20061017
  Receipt Date: 20061010
  Transmission Date: 20070319
  Serious: Yes (Other)
  Sender: FDA-Public Use
  Company Number: HQWYE974514JUL06

PATIENT
  Age: 59 Year
  Sex: Male

DRUGS (8)
  1. RAPAMUNE [Suspect]
     Indication: PROPHYLAXIS AGAINST TRANSPLANT REJECTION
     Dosage: 2 MG 1X PER 1 DAY; ORAL
     Route: 048
     Dates: start: 20060610
  2. ACYCLOVIR [Concomitant]
  3. BACTRIM DS [Concomitant]
  4. NEXIUM [Concomitant]
  5. AMARYL [Concomitant]
  6. TACROLIMUS [Concomitant]
  7. CELLCEPT [Concomitant]
  8. CELLCEPT [Concomitant]

REACTIONS (2)
  - ANASTOMOTIC STENOSIS [None]
  - DILATATION INTRAHEPATIC DUCT ACQUIRED [None]
